FAERS Safety Report 16242542 (Version 1)
Quarter: 2019Q2

REPORT INFORMATION
  Report Type: Spontaneous
  Country: AT (occurrence: AT)
  Receive Date: 20190426
  Receipt Date: 20190426
  Transmission Date: 20190711
  Serious: Yes (Death, Life-Threatening, Hospitalization)
  Sender: FDA-Public Use
  Company Number: AT-009507513-1904AUT011139

PATIENT
  Age: 63 Year
  Sex: Male
  Weight: 64 kg

DRUGS (11)
  1. SORTIS [Concomitant]
     Active Substance: ATORVASTATIN
     Indication: CORONARY ARTERY DISEASE
     Dosage: 40 MILLIGRAM (TOTAL DAILY DOSAGE 40 MG)
     Route: 048
     Dates: end: 20180411
  2. XARELTO [Concomitant]
     Active Substance: RIVAROXABAN
     Indication: INTRACARDIAC THROMBUS
     Dosage: 20 MILLIGRAM (TOTAL DAILY DOSAGE 20 MG)
     Route: 048
     Dates: end: 20180411
  3. PEMBROLIZUMAB. [Suspect]
     Active Substance: PEMBROLIZUMAB
     Indication: HEPATOCELLULAR CARCINOMA
     Dosage: 2 MG/KG BODY WEIGHT, EVERY 3 WEEKS
     Route: 042
     Dates: start: 20180110, end: 20180315
  4. PEMBROLIZUMAB. [Suspect]
     Active Substance: PEMBROLIZUMAB
     Indication: HEPATIC CANCER
  5. PREGABALIN. [Concomitant]
     Active Substance: PREGABALIN
     Indication: EPILEPSY
     Dosage: 25 MILLIGRAM (TOTAL DAILY DOSE 25 MG)
     Route: 048
     Dates: end: 20180411
  6. INSPRA [Concomitant]
     Active Substance: EPLERENONE
     Indication: CHRONIC OBSTRUCTIVE PULMONARY DISEASE
     Dosage: 25 MILLIGRAM (TOTAL DAILY DOSAGE 25 MG)
     Route: 048
     Dates: end: 20180411
  7. CIPRALEX [Concomitant]
     Active Substance: ESCITALOPRAM OXALATE
     Indication: DEPRESSION
     Dosage: 10 MILLIGRAM (TOTAL DAILY DOSAGE 20 MG)
     Route: 048
     Dates: end: 20180411
  8. PEMBROLIZUMAB. [Suspect]
     Active Substance: PEMBROLIZUMAB
     Indication: MALIGNANT NEOPLASM PROGRESSION
  9. DILATREND [Concomitant]
     Active Substance: CARVEDILOL
     Indication: CARDIAC FAILURE
     Dosage: 6.25 MG (TOTAL DAILY DOSAGE 3.125)
     Route: 048
     Dates: end: 20180411
  10. PANTIP [Concomitant]
     Active Substance: PANTOPRAZOLE SODIUM
     Indication: GASTROOESOPHAGEAL REFLUX DISEASE
     Dosage: 40 MILLIGRAM (TOTAL DAILY DOSE 40 MG)
     Route: 048
     Dates: end: 20180411
  11. OLEOVIT D3 [Concomitant]
     Active Substance: CHOLECALCIFEROL
     Indication: VITAMIN D DEFICIENCY
     Dosage: 4.3 GTT DROPS (30 GTT PER WEEK)
     Route: 048
     Dates: end: 20180411

REACTIONS (2)
  - Product use in unapproved indication [Unknown]
  - Infection [Fatal]

NARRATIVE: CASE EVENT DATE: 20180110
